FAERS Safety Report 16685110 (Version 5)
Quarter: 2019Q4

REPORT INFORMATION
  Report Type: Spontaneous
  Country: US (occurrence: US)
  Receive Date: 20190808
  Receipt Date: 20191220
  Transmission Date: 20200122
  Serious: No
  Sender: FDA-Public Use
  Company Number: US-ACTELION-A-NJ2019-192412

PATIENT
  Sex: Female
  Weight: 58.96 kg

DRUGS (3)
  1. TRACLEER [Suspect]
     Active Substance: BOSENTAN
     Indication: PULMONARY ARTERIAL HYPERTENSION
     Dosage: 125 MG, BID
     Route: 048
  2. UPTRAVI [Suspect]
     Active Substance: SELEXIPAG
     Indication: PULMONARY ARTERIAL HYPERTENSION
     Dosage: 600 MCG, BID
     Route: 048
  3. UPTRAVI [Suspect]
     Active Substance: SELEXIPAG
     Dosage: 1000 MCG, BID
     Route: 048

REACTIONS (7)
  - Diarrhoea [Unknown]
  - Dyspnoea [Unknown]
  - Headache [Unknown]
  - Drug ineffective [Unknown]
  - Therapy non-responder [Unknown]
  - Treatment noncompliance [Unknown]
  - Nausea [Unknown]
